FAERS Safety Report 9709799 (Version 4)
Quarter: 2014Q1

REPORT INFORMATION
  Report Type: Spontaneous
  Country: US (occurrence: US)
  Receive Date: 20131126
  Receipt Date: 20140110
  Transmission Date: 20141002
  Serious: Yes (Other)
  Sender: FDA-Public Use
  Company Number: US-PFIZER INC-2013336257

PATIENT
  Age: 50 Year
  Sex: Female
  Weight: 93.9 kg

DRUGS (15)
  1. XELJANZ [Suspect]
     Indication: RHEUMATOID ARTHRITIS
     Dosage: 5 MG, DAILY
     Dates: start: 20130424, end: 20131120
  2. SOLU-MEDROL [Suspect]
     Indication: PAIN
     Dosage: 60 MG, UNK
     Dates: start: 20131123
  3. SOLU-MEDROL [Suspect]
     Indication: RHEUMATOID ARTHRITIS
  4. PREDNISONE [Suspect]
     Indication: SWELLING
     Dosage: 5 MG, DAILY
     Dates: start: 201003, end: 20131116
  5. PREDNISONE [Suspect]
     Indication: RHEUMATOID ARTHRITIS
     Dosage: 10 MG, DAILY
     Dates: start: 20131117, end: 20131119
  6. PREDNISONE [Suspect]
     Indication: CROHN^S DISEASE
     Dosage: 20 MG, DAILY
     Dates: start: 20131120, end: 20131120
  7. PREDNISONE [Suspect]
     Indication: RHEUMATOID ARTHRITIS
     Dosage: 20 MG, 2X/DAY
     Dates: start: 20131121
  8. PREDNISONE [Suspect]
     Dosage: 05 MG, UNK
     Dates: start: 201005
  9. PREDNISONE [Suspect]
     Dosage: UNK
     Dates: start: 20131121
  10. LOVAZA [Concomitant]
     Indication: BLOOD CHOLESTEROL ABNORMAL
     Dosage: 4G DAILY (TAKING FOUR TABLETS OF 1G EACH)
  11. CRESTOR [Concomitant]
     Indication: BLOOD CHOLESTEROL ABNORMAL
     Dosage: 20 MG, DAILY
  12. DIOVAN [Concomitant]
     Indication: HYPERTENSION
     Dosage: 80 MG, DAILY
  13. PERCOCET [Concomitant]
     Indication: PAIN
     Dosage: (OXYCODONE HYDROCHLORIDE 5MG / PARACETAMOL 325 MG), 4X/DAY
  14. LUVOX [Concomitant]
     Indication: DEPRESSION
     Dosage: 50MG AT NIGHT DAILY
  15. CLONAZEPAM [Concomitant]
     Indication: ANXIETY
     Dosage: 0.5 MG, 3X/DAY
     Dates: start: 20131118

REACTIONS (11)
  - Rheumatoid arthritis [Not Recovered/Not Resolved]
  - Abasia [Unknown]
  - Drug ineffective [Unknown]
  - Drug interaction [Unknown]
  - Joint swelling [Not Recovered/Not Resolved]
  - Bone swelling [Not Recovered/Not Resolved]
  - Tenderness [Unknown]
  - Pain [Not Recovered/Not Resolved]
  - Impaired driving ability [Unknown]
  - Activities of daily living impaired [Unknown]
  - Weight increased [Unknown]
